FAERS Safety Report 9077229 (Version 2)
Quarter: 2013Q2

REPORT INFORMATION
  Report Type: Spontaneous
  Country: US (occurrence: US)
  Receive Date: 20130130
  Receipt Date: 20130411
  Transmission Date: 20140414
  Serious: Yes (Hospitalization)
  Sender: FDA-Public Use
  Company Number: US-BAYER-2013-011150

PATIENT
  Age: 28 Year
  Sex: Female

DRUGS (26)
  1. YASMIN [Suspect]
  2. CITALOPRAM [Concomitant]
  3. PROPRANOLOL [Concomitant]
  4. MIDRIN [Concomitant]
  5. CLINDAMYCIN [Concomitant]
  6. COLESTIPOL [Concomitant]
  7. GABAPENTIN [Concomitant]
  8. HYOSCYAMINE [Concomitant]
  9. OMEPRAZOLE [Concomitant]
  10. ZOFRAN [Concomitant]
  11. RIFAMPIN [Concomitant]
  12. IMITREX [Concomitant]
  13. VICODIN [Concomitant]
  14. ROCEPHIN [Concomitant]
  15. ZITHROMAX [Concomitant]
  16. CEFTRIAXONE [Concomitant]
  17. CELEXA [Concomitant]
     Dosage: UNK
     Route: 048
     Dates: start: 20100830
  18. INDERAL [Concomitant]
     Dosage: UNK
     Route: 048
     Dates: start: 20110830
  19. GLUCOSAMINE [Concomitant]
     Dosage: UNK
     Route: 048
     Dates: start: 20100830
  20. MULTIVITAMIN [Concomitant]
  21. PRILOSEC [Concomitant]
  22. VITAMIN D [Concomitant]
  23. FISH OIL [Concomitant]
  24. ATIVAN [Concomitant]
  25. COMPAZINE [Concomitant]
  26. TORADOL [Concomitant]

REACTIONS (2)
  - Cholecystitis acute [None]
  - Pulmonary embolism [Recovered/Resolved]
